FAERS Safety Report 8201418-1 (Version None)
Quarter: 2012Q1

REPORT INFORMATION
  Report Type: 
  Country: None (occurrence: None)
  Receive Date: 20120312
  Receipt Date: 20120305
  Transmission Date: 20120608
  Serious: Yes (Other)
  Sender: FDA-Public Use
  Company Number: US-BAYER-2012-022377

PATIENT
  Age: 27 Year
  Sex: Male
  Weight: 38 kg

DRUGS (2)
  1. ASPIRIN [Suspect]
     Dosage: DOSE AS USED: 2. BOTTLE COUNT 50S
     Route: 048
     Dates: start: 20120304, end: 20120304
  2. ANALGESICS [Concomitant]

REACTIONS (2)
  - HYPOACUSIS [None]
  - TINNITUS [None]
